FAERS Safety Report 18565643 (Version 1)
Quarter: 2020Q4

REPORT INFORMATION
  Report Type: Spontaneous
  Country: TW (occurrence: TW)
  Receive Date: 20201201
  Receipt Date: 20201201
  Transmission Date: 20210114
  Serious: Yes (Hospitalization)
  Sender: FDA-Public Use
  Company Number: TW-009507513-2011TWN016323

PATIENT
  Age: 54 Year
  Sex: Male

DRUGS (1)
  1. DAPTOMYCIN. [Suspect]
     Active Substance: DAPTOMYCIN
     Dosage: 500 MG, QOD/MRSA INFECTION, GNB BACTEREMIA/25-OCT-UNK, 27-OCT-UNK AND 29-OCT-UNK/ 5 DAYS
     Route: 065

REACTIONS (1)
  - Drug eruption [Recovered/Resolved]
